FAERS Safety Report 17987918 (Version 1)
Quarter: 2020Q3

REPORT INFORMATION
  Report Type: Spontaneous
  Country: US (occurrence: US)
  Receive Date: 20200706
  Receipt Date: 20200706
  Transmission Date: 20201103
  Serious: Yes (Hospitalization)
  Sender: FDA-Public Use
  Company Number: None

PATIENT
  Age: 70 Year
  Sex: Female
  Weight: 88 kg

DRUGS (17)
  1. ALDACTONE [Suspect]
     Active Substance: SPIRONOLACTONE
  2. LACTULOSE. [Suspect]
     Active Substance: LACTULOSE
  3. VITAMIN B12 [Suspect]
     Active Substance: CYANOCOBALAMIN
  4. ONDANSETRON [Concomitant]
     Active Substance: ONDANSETRON
  5. KCL [Suspect]
     Active Substance: POTASSIUM CHLORIDE
  6. CLOFAZIMINE. [Concomitant]
     Active Substance: CLOFAZIMINE
  7. LEVOTHYROXINE. [Suspect]
     Active Substance: LEVOTHYROXINE
  8. MAGNESIUM [Suspect]
     Active Substance: MAGNESIUM
  9. ZANAFLEX [Suspect]
     Active Substance: TIZANIDINE HYDROCHLORIDE
  10. LASIX [Suspect]
     Active Substance: FUROSEMIDE
  11. MULTIVITAMIN [Suspect]
     Active Substance: VITAMINS
  12. IBRANCE [Suspect]
     Active Substance: PALBOCICLIB
     Indication: BREAST CANCER
     Route: 048
     Dates: start: 20200404, end: 20200615
  13. PROBIOTIC [Suspect]
     Active Substance: PROBIOTICS NOS
  14. LORAZEPAM. [Suspect]
     Active Substance: LORAZEPAM
  15. XIFAXAN [Suspect]
     Active Substance: RIFAXIMIN
  16. AROMASIN [Concomitant]
     Active Substance: EXEMESTANE
  17. AZO BLADDER CONTROL [Concomitant]

REACTIONS (1)
  - Gastrointestinal haemorrhage [None]

NARRATIVE: CASE EVENT DATE: 20200615
